FAERS Safety Report 14125177 (Version 1)
Quarter: 2017Q4

REPORT INFORMATION
  Report Type: Spontaneous
  Country: US (occurrence: US)
  Receive Date: 20171025
  Receipt Date: 20171025
  Transmission Date: 20180321
  Serious: No
  Sender: FDA-Public Use
  Company Number: US-BAYER-2017-197561

PATIENT
  Age: 38 Year
  Sex: Female
  Weight: 68 kg

DRUGS (3)
  1. LOTRIMIN ULTRA [Suspect]
     Active Substance: BUTENAFINE HYDROCHLORIDE
     Indication: RASH
  2. ANTI-LIPIDE [Concomitant]
     Active Substance: CLOFIBRATE\INOSITOL NIACINATE
     Dosage: UNK
  3. LOTRIMIN ULTRA [Suspect]
     Active Substance: BUTENAFINE HYDROCHLORIDE
     Indication: THERAPEUTIC SKIN CARE TOPICAL
     Dosage: 1 DF, UNK
     Route: 061
     Dates: end: 20171009

REACTIONS (3)
  - Product used for unknown indication [Unknown]
  - Rash papular [Recovered/Resolved]
  - Off label use [Unknown]
